FAERS Safety Report 25785969 (Version 3)
Quarter: 2025Q3

REPORT INFORMATION
  Report Type: Report from Study
  Country: US (occurrence: US)
  Receive Date: 20250910
  Receipt Date: 20250923
  Transmission Date: 20251021
  Serious: Yes (Hospitalization, Other)
  Sender: MALLINCKRODT
  Company Number: US-MALLINCKRODT-MNK202505454

PATIENT
  Age: 57 Year
  Sex: Male

DRUGS (1)
  1. CORTICOTROPIN [Suspect]
     Active Substance: CORTICOTROPIN
     Indication: Iridocyclitis
     Route: 058
     Dates: start: 20250815, end: 2025

REACTIONS (8)
  - Cardiac disorder [Unknown]
  - Heart rate increased [Unknown]
  - Dyspnoea [Unknown]
  - Chest pain [Unknown]
  - Uveitis [Unknown]
  - Atrial fibrillation [Unknown]
  - Dizziness [Unknown]
  - Diarrhoea [Unknown]

NARRATIVE: CASE EVENT DATE: 20250824
